FAERS Safety Report 12284254 (Version 1)
Quarter: 2016Q2

REPORT INFORMATION
  Report Type: Spontaneous
  Country: CN (occurrence: CN)
  Receive Date: 20160420
  Receipt Date: 20160420
  Transmission Date: 20160815
  Serious: Yes (Hospitalization)
  Sender: FDA-Public Use
  Company Number: CN-ROCHE-1743584

PATIENT
  Age: 45 Year
  Sex: Male

DRUGS (6)
  1. PREDNISONE. [Suspect]
     Active Substance: PREDNISONE
     Indication: LIVER TRANSPLANT
     Route: 048
     Dates: start: 20151108
  2. PROGRAF [Suspect]
     Active Substance: TACROLIMUS\TACROLIMUS ANHYDROUS
     Indication: LIVER TRANSPLANT
     Route: 048
     Dates: start: 20151108
  3. MEROPENEM. [Concomitant]
     Active Substance: MEROPENEM
     Route: 065
     Dates: start: 20151113
  4. ENTECAVIR. [Concomitant]
     Active Substance: ENTECAVIR
     Route: 065
     Dates: start: 20151113
  5. CELLCEPT [Suspect]
     Active Substance: MYCOPHENOLATE MOFETIL\MYCOPHENOLATE MOFETIL HYDROCHLORIDE
     Indication: LIVER TRANSPLANT
     Route: 048
     Dates: start: 20151108
  6. URSODESOXYCHOLIC ACID [Concomitant]
     Active Substance: URSODIOL
     Route: 065
     Dates: start: 20151113

REACTIONS (2)
  - Mental disorder [Recovered/Resolved]
  - Mania [Recovered/Resolved]

NARRATIVE: CASE EVENT DATE: 20151114
